FAERS Safety Report 21405940 (Version 7)
Quarter: 2023Q4

REPORT INFORMATION
  Report Type: Report from Study
  Country: JP (occurrence: JP)
  Receive Date: 20221004
  Receipt Date: 20231218
  Transmission Date: 20240110
  Serious: Yes (Hospitalization, Other)
  Sender: FDA-Public Use
  Company Number: JP-MSD-M2022-39815

PATIENT
  Age: 58 Year
  Sex: Female
  Weight: 64.7 kg

DRUGS (6)
  1. PEMBROLIZUMAB [Suspect]
     Active Substance: PEMBROLIZUMAB
     Indication: Uterine cancer
     Dosage: 200 MILLIGRAM, Q3W
     Route: 041
     Dates: start: 20220913, end: 20230913
  2. PEMBROLIZUMAB [Suspect]
     Active Substance: PEMBROLIZUMAB
     Dosage: UNK
     Route: 041
     Dates: start: 20230331
  3. LENVATINIB MESYLATE [Suspect]
     Active Substance: LENVATINIB MESYLATE
     Indication: Uterine cancer
     Dosage: 20 MILLIGRAM, QD
     Route: 048
     Dates: start: 20220913, end: 20220927
  4. LENVATINIB MESYLATE [Suspect]
     Active Substance: LENVATINIB MESYLATE
     Dosage: 20 MILLIGRAM, QD
     Route: 048
     Dates: start: 20230331
  5. DIPHENHYDRAMINE HYDROCHLORIDE [Concomitant]
     Active Substance: DIPHENHYDRAMINE HYDROCHLORIDE
     Dosage: UNK
     Route: 065
  6. ACETAMINOPHEN [Concomitant]
     Active Substance: ACETAMINOPHEN
     Dosage: UNK
     Route: 065

REACTIONS (15)
  - Radiation pneumonitis [Recovered/Resolved]
  - Neutropenia [Recovering/Resolving]
  - Haematuria [Recovering/Resolving]
  - Infusion related reaction [Recovering/Resolving]
  - Pyrexia [Recovering/Resolving]
  - Hypertension [Recovering/Resolving]
  - Proteinuria [Recovering/Resolving]
  - Headache [Recovering/Resolving]
  - Malaise [Recovering/Resolving]
  - Arthralgia [Recovering/Resolving]
  - Nausea [Unknown]
  - Vomiting [Unknown]
  - Headache [Unknown]
  - Hypertension [Unknown]
  - Off label use [Unknown]

NARRATIVE: CASE EVENT DATE: 20220901
